FAERS Safety Report 7811994-6 (Version None)
Quarter: 2011Q4

REPORT INFORMATION
  Report Type: 
  Country: None (occurrence: None)
  Receive Date: 20111013
  Receipt Date: 20111007
  Transmission Date: 20120403
  Serious: Yes (Hospitalization)
  Sender: FDA-Public Use
  Company Number: CA-ROCHE-1003263

PATIENT
  Sex: Female

DRUGS (5)
  1. PREDNISONE [Concomitant]
  2. ADVAIR DISKUS 100/50 [Concomitant]
  3. XOLAIR [Suspect]
     Indication: ASTHMA
     Route: 058
     Dates: start: 20110811
  4. MOMETASONE FUROATE [Concomitant]
  5. SPIRIVA [Concomitant]

REACTIONS (2)
  - RESPIRATORY FAILURE [None]
  - DYSPNOEA [None]
